FAERS Safety Report 16366278 (Version 1)
Quarter: 2019Q3

REPORT INFORMATION
  Report Type: Spontaneous
  Country: US (occurrence: US)
  Receive Date: 20190528
  Receipt Date: 20190528
  Transmission Date: 20191004
  Serious: Yes (Hospitalization)
  Sender: FDA-Public Use
  Company Number: None

PATIENT
  Age: 88 Year
  Sex: Female

DRUGS (2)
  1. TAFINLAR [Suspect]
     Active Substance: DABRAFENIB MESYLATE
     Indication: THYROID CANCER
     Route: 048
  2. MEKINIST [Suspect]
     Active Substance: TRAMETINIB DIMETHYL SULFOXIDE
     Indication: THYROID CANCER
     Route: 048

REACTIONS (2)
  - Dehydration [None]
  - Abdominal discomfort [None]

NARRATIVE: CASE EVENT DATE: 20190522
